FAERS Safety Report 19581555 (Version 1)
Quarter: 2021Q3

REPORT INFORMATION
  Report Type: Spontaneous
  Country: FR (occurrence: FR)
  Receive Date: 20210720
  Receipt Date: 20210720
  Transmission Date: 20211014
  Serious: Yes (Hospitalization, Other)
  Sender: FDA-Public Use
  Company Number: FR-AUROBINDO-AUR-APL-2021-031664

PATIENT
  Age: 28 Year
  Sex: Female

DRUGS (1)
  1. TRAMADOL. [Suspect]
     Active Substance: TRAMADOL
     Indication: PAIN
     Dosage: 950 MILLIGRAM, ONCE A DAY
     Route: 048
     Dates: start: 201406

REACTIONS (1)
  - Drug use disorder [Recovered/Resolved]

NARRATIVE: CASE EVENT DATE: 2014
